FAERS Safety Report 10188588 (Version 1)
Quarter: 2014Q2

REPORT INFORMATION
  Report Type: Spontaneous
  Country: US (occurrence: US)
  Receive Date: 20140522
  Receipt Date: 20140522
  Transmission Date: 20141212
  Serious: No
  Sender: FDA-Public Use
  Company Number: US-SA-2014SA033917

PATIENT
  Age: 53 Year
  Sex: Male

DRUGS (2)
  1. SOLOSTAR [Suspect]
     Indication: DEVICE THERAPY
     Dosage: TREATMENT START DATE: 3-4 YEARS AGO
  2. LANTUS SOLOSTAR [Suspect]
     Indication: TYPE 2 DIABETES MELLITUS
     Dosage: TREATMENT START DATE: 3-4 YEARS AGO DOSE:45 UNIT(S)
     Route: 065

REACTIONS (2)
  - Injection site laceration [Unknown]
  - Drug administration error [Unknown]
